FAERS Safety Report 7551119-8 (Version None)
Quarter: 2011Q2

REPORT INFORMATION
  Report Type: 
  Country: None (occurrence: None)
  Receive Date: 20110616
  Receipt Date: 20110527
  Transmission Date: 20111010
  Serious: Yes (Other)
  Sender: FDA-Public Use
  Company Number: US-BAYER-2011-050694

PATIENT

DRUGS (3)
  1. UNKNOWN INJECTION [Concomitant]
  2. ALEVE (CAPLET) [Suspect]
     Route: 048
  3. MOTRIN [Concomitant]
     Dosage: 400 MG, UNK

REACTIONS (5)
  - HEMIPARESIS [None]
  - LYMPHADENOPATHY [None]
  - TREMOR [None]
  - ABDOMINAL DISCOMFORT [None]
  - JOINT SWELLING [None]
